FAERS Safety Report 5409409-0 (Version None)
Quarter: 2007Q3

REPORT INFORMATION
  Report Type: 
  Country: None (occurrence: None)
  Receive Date: 20070809
  Receipt Date: 20070802
  Transmission Date: 20080115
  Serious: Yes (Other)
  Sender: FDA-Public Use
  Company Number: US-BRISTOL-MYERS SQUIBB COMPANY-11941143

PATIENT
  Age: 35 Year
  Sex: Male

DRUGS (9)
  1. EFAVIRENZ [Suspect]
     Indication: HIV INFECTION
     Route: 048
     Dates: start: 20010402
  2. LAMIVUDINE [Suspect]
     Indication: HIV INFECTION
     Route: 048
     Dates: start: 20010402
  3. ABACAVIR SULFATE [Suspect]
     Indication: HIV INFECTION
     Route: 048
     Dates: start: 20010402
  4. LOPINAVIR AND RITONAVIR [Suspect]
     Indication: HIV INFECTION
     Dosage: DOSE WAS CHANGED TO 6 TABLETS DAILY FROM 13-NOV-2006 AND CONTINUES.
     Route: 048
     Dates: start: 20010402, end: 20061112
  5. INDINIVIR SULFATE [Suspect]
     Indication: HIV INFECTION
     Route: 048
     Dates: start: 19960909, end: 20010402
  6. AMPHOTERICIN B [Concomitant]
     Dates: end: 20010910
  7. LANSOPRAZOLE [Concomitant]
     Dates: end: 20010813
  8. HIVID [Concomitant]
     Dates: start: 19960725, end: 20010402
  9. RETROVIR [Concomitant]
     Dates: start: 19951121, end: 20010402

REACTIONS (2)
  - HYPERLIPIDAEMIA [None]
  - RASH [None]
